FAERS Safety Report 23448295 (Version 1)
Quarter: 2024Q1

REPORT INFORMATION
  Report Type: Other
  Country: CA (occurrence: CA)
  Receive Date: 20240127
  Receipt Date: 20240127
  Transmission Date: 20240410
  Serious: Yes (Other)
  Sender: FDA-Public Use
  Company Number: CA-BIOCON BIOLOGICS LIMITED-BBL2023001862

PATIENT

DRUGS (3)
  1. HULIO [Suspect]
     Active Substance: ADALIMUMAB-FKJP
     Indication: Colitis ulcerative
     Dosage: 40 MG, QW
     Route: 058
  2. HULIO [Suspect]
     Active Substance: ADALIMUMAB-FKJP
     Indication: Ankylosing spondylitis
     Dosage: 40 MG
     Route: 058
  3. METHOTREXATE [Suspect]
     Active Substance: METHOTREXATE
     Indication: Product used for unknown indication
     Route: 065

REACTIONS (14)
  - Aggression [Unknown]
  - Ankylosing spondylitis [Unknown]
  - Depression [Unknown]
  - Dyspepsia [Unknown]
  - Feeling abnormal [Unknown]
  - Irritability [Unknown]
  - Rhinorrhoea [Unknown]
  - Skin striae [Unknown]
  - Taste disorder [Unknown]
  - Nasopharyngitis [Unknown]
  - Injection site pain [Unknown]
  - Inflammation [Unknown]
  - Gastrointestinal disorder [Unknown]
  - Fatigue [Unknown]
